FAERS Safety Report 23061556 (Version 1)
Quarter: 2023Q4

REPORT INFORMATION
  Report Type: Other
  Country: ES (occurrence: None)
  Receive Date: 20231013
  Receipt Date: 20231013
  Transmission Date: 20240110
  Serious: Yes (Death)
  Sender: FDA-Public Use
  Company Number: ES-ROCHE-3436777

PATIENT

DRUGS (1)
  1. RITUXIMAB [Suspect]
     Active Substance: RITUXIMAB
     Indication: Systemic scleroderma
     Dosage: DAY 1 AND DAY 15, REPEAT CYCLE EVERY 6 MONTHS IF REQUIRED
     Route: 042

REACTIONS (2)
  - COVID-19 pneumonia [Fatal]
  - Infusion related reaction [Unknown]
